FAERS Safety Report 7276730-3 (Version None)
Quarter: 2011Q1

REPORT INFORMATION
  Report Type: 
  Country: None (occurrence: None)
  Receive Date: 20110204
  Receipt Date: 20110201
  Transmission Date: 20110831
  Serious: Yes (Other)
  Sender: FDA-Public Use
  Company Number: DK-PFIZER INC-2010157673

PATIENT
  Age: 65 Year
  Sex: Female

DRUGS (4)
  1. ZOLEDRONIC ACID [Suspect]
     Indication: METASTASES TO BONE
  2. ZOLEDRONIC ACID [Suspect]
     Indication: HYPERCALCAEMIA
     Dosage: 4 MG, CYCLIC: EVERY 6 WEEKS
     Dates: start: 20090428, end: 20090901
  3. SUNITINIB MALATE [Suspect]
     Indication: METASTATIC RENAL CELL CARCINOMA
     Dosage: 25-50MG 4/2 SCHEDULE
     Route: 048
     Dates: start: 20080402, end: 20100617
  4. ZOLEDRONIC ACID [Suspect]
     Indication: PROPHYLAXIS

REACTIONS (2)
  - OSTEONECROSIS OF JAW [None]
  - PAIN IN JAW [None]
